FAERS Safety Report 5996703-8 (Version None)
Quarter: 2008Q4

REPORT INFORMATION
  Report Type: 
  Country: None (occurrence: None)
  Receive Date: 20081212
  Receipt Date: 20081020
  Transmission Date: 20090506
  Serious: No
  Sender: FDA-Public Use
  Company Number: US-ABBOTT-08P-163-0483378-00

PATIENT
  Sex: Female

DRUGS (13)
  1. HUMIRA [Suspect]
     Indication: PSORIATIC ARTHROPATHY
     Route: 058
     Dates: start: 20080401, end: 20080801
  2. HUMIRA [Suspect]
     Route: 058
     Dates: start: 20080801, end: 20081001
  3. HUMIRA [Suspect]
     Route: 058
     Dates: start: 20081001
  4. FENOFIBRATE [Concomitant]
     Indication: BLOOD TRIGLYCERIDES
     Route: 048
     Dates: start: 20080801
  5. MONTELUKAST SODIUM [Concomitant]
     Indication: SEASONAL ALLERGY
     Route: 048
     Dates: start: 20030101
  6. SERETIDE [Concomitant]
     Indication: SEASONAL ALLERGY
     Dosage: 250/50MCG
     Dates: start: 20020101
  7. LORATADINE [Concomitant]
     Indication: HYPERSENSITIVITY
     Route: 048
  8. GUAIFENESIN [Concomitant]
     Indication: HYPERSENSITIVITY
     Dosage: 1200MG X 2
     Route: 048
     Dates: start: 20070101
  9. NASOMEX [Concomitant]
     Indication: SEASONAL ALLERGY
     Route: 045
     Dates: start: 20070101
  10. CROMOLYN SODIUM [Concomitant]
     Indication: SEASONAL ALLERGY
     Route: 045
     Dates: start: 20080901
  11. OLMESARTAN MEDOXOMIL [Concomitant]
     Indication: BLOOD PRESSURE
     Route: 048
     Dates: start: 20060101
  12. PRILOSEC OTC [Concomitant]
     Indication: DRUG THERAPY
     Route: 048
     Dates: start: 20050101
  13. CENTRUM SILVER MULTIVITAMIN [Concomitant]
     Indication: VITAMIN SUPPLEMENTATION
     Route: 048
     Dates: start: 20080101

REACTIONS (7)
  - HEPATIC ENZYME INCREASED [None]
  - LACRIMATION INCREASED [None]
  - LIVER FUNCTION TEST ABNORMAL [None]
  - PRODUCTIVE COUGH [None]
  - RHINORRHOEA [None]
  - SPUTUM DISCOLOURED [None]
  - SPUTUM NORMAL [None]
